FAERS Safety Report 15413387 (Version 1)
Quarter: 2018Q3

REPORT INFORMATION
  Report Type: Report from Study
  Country: NL (occurrence: NL)
  Receive Date: 20180921
  Receipt Date: 20180921
  Transmission Date: 20181010
  Serious: Yes (Other)
  Sender: FDA-Public Use
  Company Number: NL-AMGEN-NLDSL2018115144

PATIENT
  Age: 68 Year
  Sex: Female

DRUGS (3)
  1. CALCIUM [Concomitant]
     Active Substance: CALCIUM
     Dosage: UNK
  2. XGEVA [Suspect]
     Active Substance: DENOSUMAB
     Indication: PROPHYLAXIS
     Dosage: 120 MG/1.7ML, Q4WK
     Route: 058
  3. XGEVA [Suspect]
     Active Substance: DENOSUMAB
     Dosage: UNK
     Route: 058

REACTIONS (5)
  - Exposed bone in jaw [Not Recovered/Not Resolved]
  - Neoplasm progression [Unknown]
  - Weight decreased [Unknown]
  - Dry mouth [Unknown]
  - Headache [Unknown]

NARRATIVE: CASE EVENT DATE: 20180903
